FAERS Safety Report 20450545 (Version 1)
Quarter: 2022Q1

REPORT INFORMATION
  Report Type: Spontaneous
  Country: US (occurrence: None)
  Receive Date: 20220209
  Receipt Date: 20220209
  Transmission Date: 20220423
  Serious: Yes (Hospitalization)
  Sender: FDA-Public Use
  Company Number: None

PATIENT
  Sex: Female

DRUGS (1)
  1. COLISTIMETHATE SODIUM [Suspect]
     Active Substance: COLISTIMETHATE SODIUM
     Indication: Cystic fibrosis
     Dosage: FREQUENCY: INHALE VIA NEBULIZER TWICE DAILY FOR ONE MONTH ON, ONE MONTH OFF.?
     Route: 055
     Dates: start: 201804

REACTIONS (1)
  - Infection [None]
